FAERS Safety Report 6369446-9 (Version None)
Quarter: 2009Q3

REPORT INFORMATION
  Report Type: 
  Country: None (occurrence: None)
  Receive Date: 20090923
  Receipt Date: 20090911
  Transmission Date: 20100115
  Serious: Yes (Hospitalization, Other)
  Sender: FDA-Public Use
  Company Number: US-BIOGENIDEC-145280

PATIENT
  Age: 58 Year
  Sex: Female
  Weight: 99 kg

DRUGS (3)
  1. AVONEX [Suspect]
     Indication: MULTIPLE SCLEROSIS
     Route: 030
     Dates: start: 19961001
  2. XALATAN [Concomitant]
     Indication: GLAUCOMA
  3. PREMPRO [Concomitant]
     Indication: HORMONE REPLACEMENT THERAPY
     Dates: start: 19980101, end: 20001202

REACTIONS (6)
  - BLOOD CALCIUM INCREASED [None]
  - BREAST CANCER [None]
  - BREAST CANCER METASTATIC [None]
  - LIVER FUNCTION TEST ABNORMAL [None]
  - NAUSEA [None]
  - PAIN [None]
